FAERS Safety Report 13761165 (Version 1)
Quarter: 2017Q3

REPORT INFORMATION
  Report Type: Spontaneous
  Country: US (occurrence: US)
  Receive Date: 20170717
  Receipt Date: 20170717
  Transmission Date: 20171127
  Serious: Yes (Death)
  Sender: FDA-Public Use
  Company Number: US-CELGENEUS-USA-20170702209

PATIENT
  Sex: Male

DRUGS (1)
  1. REVLIMID [Suspect]
     Active Substance: LENALIDOMIDE
     Indication: BURKITT^S LYMPHOMA
     Dosage: 25 MILLIGRAM
     Route: 048
     Dates: start: 201702

REACTIONS (1)
  - Burkitt^s lymphoma [Fatal]

NARRATIVE: CASE EVENT DATE: 2017
